FAERS Safety Report 8960787 (Version 1)
Quarter: 2012Q4

REPORT INFORMATION
  Report Type: Spontaneous
  Country: US (occurrence: None)
  Receive Date: 20121123
  Receipt Date: 20121123
  Transmission Date: 20130627
  Serious: Yes (Hospitalization)
  Sender: FDA-Public Use
  Company Number: 2012033985

PATIENT
  Age: 31 Year
  Sex: Female

DRUGS (5)
  1. IVIG [Suspect]
     Indication: NEUROMYELITIS OPTICA
     Route: 042
  2. CORTICOSTEROIDS [Suspect]
     Indication: NEUROMYELITIS OPTICA
  3. CYCLOPHOSPHAMIDE (CYCLOPHOSPHAMIDE) [Concomitant]
  4. AZATHIOPRINE (AZATHIOPRINE) [Concomitant]
  5. PREDNISONE (PREDNISONE) [Concomitant]

REACTIONS (6)
  - Off label use [None]
  - Muscle spasms [None]
  - Blindness [None]
  - Muscular weakness [None]
  - Urinary incontinence [None]
  - Condition aggravated [None]
